FAERS Safety Report 6669465-9 (Version None)
Quarter: 2010Q2

REPORT INFORMATION
  Report Type: 
  Country: None (occurrence: None)
  Receive Date: 20100406
  Receipt Date: 20100326
  Transmission Date: 20101027
  Serious: Yes (Hospitalization, Other)
  Sender: FDA-Public Use
  Company Number: PHHY2010MX08972

PATIENT
  Sex: Female

DRUGS (1)
  1. TRILEPTAL [Suspect]
     Indication: TEMPORAL LOBE EPILEPSY
     Dosage: 01 TABLET (300 MG, DAILY)
     Dates: start: 20060201

REACTIONS (8)
  - ABDOMINAL PAIN [None]
  - BREATH ODOUR [None]
  - CHOLELITHIASIS [None]
  - GALLBLADDER OPERATION [None]
  - GASTRITIS [None]
  - IRRITABLE BOWEL SYNDROME [None]
  - NAUSEA [None]
  - VOMITING [None]
